FAERS Safety Report 6236678-X (Version None)
Quarter: 2009Q2

REPORT INFORMATION
  Report Type: 
  Country: None (occurrence: None)
  Receive Date: 20090619
  Receipt Date: 20090205
  Transmission Date: 20091009
  Serious: Yes (Hospitalization)
  Sender: FDA-Public Use
  Company Number: US-ASTRAZENECA-2009UW03411

PATIENT
  Age: 63 Year
  Sex: Female

DRUGS (3)
  1. ATACAND HCT [Suspect]
     Route: 048
  2. UNSPECIFIED GOUT MEDICATION [Suspect]
  3. UNSPECIFIED CHOLESTEROL MEDICATION [Concomitant]

REACTIONS (2)
  - DRUG INTERACTION [None]
  - RENAL FAILURE [None]
